FAERS Safety Report 8816271 (Version 1)
Quarter: 2012Q4

REPORT INFORMATION
  Report Type: Spontaneous
  Country: US (occurrence: None)
  Receive Date: 20120927
  Receipt Date: 20120927
  Transmission Date: 20130627
  Serious: Yes (Hospitalization, Other)
  Sender: FDA-Public Use
  Company Number: None

PATIENT
  Age: 67 Year
  Sex: Male
  Weight: 88.45 kg

DRUGS (1)
  1. CYMBALTA [Suspect]
     Indication: NERVE PAIN
     Dosage: 1 DAILY
     Dates: start: 20120319, end: 20120321

REACTIONS (1)
  - Hyponatraemia [None]
